FAERS Safety Report 15483632 (Version 2)
Quarter: 2018Q4

REPORT INFORMATION
  Report Type: Spontaneous
  Country: US (occurrence: US)
  Receive Date: 20181010
  Receipt Date: 20181203
  Transmission Date: 20190205
  Serious: Yes (Other)
  Sender: FDA-Public Use
  Company Number: US-PFIZER INC-2017483209

PATIENT
  Sex: Female

DRUGS (14)
  1. RANITIDINE. [Concomitant]
     Active Substance: RANITIDINE
     Dosage: UNK
     Dates: start: 1997, end: 2010
  2. LANTUS [Concomitant]
     Active Substance: INSULIN GLARGINE
     Dosage: UNK
     Dates: start: 2000, end: 2010
  3. PANTOPRAZOLE [Suspect]
     Active Substance: PANTOPRAZOLE
     Dosage: 40 MG, UNK
     Route: 048
     Dates: start: 2008, end: 2009
  4. PENICILLIN G [BENZYLPENICILLIN] [Concomitant]
     Dosage: UNK
     Dates: start: 1995, end: 2010
  5. CYCLOBENZAPRINE. [Concomitant]
     Active Substance: CYCLOBENZAPRINE
     Indication: MUSCLE RELAXANT THERAPY
     Dosage: UNK
     Dates: start: 1995, end: 2010
  6. CYMBALTA [Concomitant]
     Active Substance: DULOXETINE HYDROCHLORIDE
     Dosage: UNK
     Dates: start: 2000, end: 2010
  7. IBUPROFEN. [Concomitant]
     Active Substance: IBUPROFEN
     Dosage: UNK
     Dates: start: 1996
  8. NEXIUM [Suspect]
     Active Substance: ESOMEPRAZOLE MAGNESIUM
     Dosage: 40 MG, UNK
     Route: 048
     Dates: start: 2010
  9. PROZAC [Concomitant]
     Active Substance: FLUOXETINE HYDROCHLORIDE
     Dosage: UNK
     Dates: start: 1995, end: 2010
  10. NEXIUM [Suspect]
     Active Substance: ESOMEPRAZOLE MAGNESIUM
     Dosage: 40 MG, UNK
     Route: 048
     Dates: start: 2011, end: 2016
  11. INSULIN [Concomitant]
     Active Substance: INSULIN NOS
     Indication: DIABETES MELLITUS
     Dosage: UNK
     Dates: start: 1995, end: 2010
  12. ACETAMINOPHEN. [Concomitant]
     Active Substance: ACETAMINOPHEN
     Indication: HEADACHE
     Dosage: UNK
  13. PREVACID [Suspect]
     Active Substance: LANSOPRAZOLE
     Dosage: 30 MG, UNK
     Route: 048
     Dates: start: 2001
  14. RANITIDINE. [Concomitant]
     Active Substance: RANITIDINE
     Dosage: UNK

REACTIONS (3)
  - Acute kidney injury [Not Recovered/Not Resolved]
  - Renal failure [Not Recovered/Not Resolved]
  - Chronic kidney disease [Not Recovered/Not Resolved]

NARRATIVE: CASE EVENT DATE: 201212
